FAERS Safety Report 5906728-6 (Version None)
Quarter: 2008Q4

REPORT INFORMATION
  Report Type: 
  Country: None (occurrence: None)
  Receive Date: 20081002
  Receipt Date: 20080930
  Transmission Date: 20090506
  Serious: No
  Sender: FDA-Public Use
  Company Number: US-MERCK-0809USA04527

PATIENT
  Age: 31 Year
  Sex: Female

DRUGS (1)
  1. SINGULAIR [Suspect]
     Indication: RHINITIS
     Route: 048
     Dates: start: 20080101, end: 20080101

REACTIONS (2)
  - ADVERSE EVENT [None]
  - DEPRESSION [None]
